FAERS Safety Report 6496492-7 (Version None)
Quarter: 2009Q4

REPORT INFORMATION
  Report Type: 
  Country: None (occurrence: None)
  Receive Date: 20091125
  Receipt Date: 20081010
  Transmission Date: 20100525
  Serious: Yes (Other)
  Sender: FDA-Public Use
  Company Number: 2008BH010939

PATIENT
  Age: 45 Year
  Sex: Male

DRUGS (2)
  1. DIANEAL [Suspect]
     Indication: PERITONEAL DIALYSIS
     Dosage: 12 L;EVERY DAY;IP
     Route: 033
     Dates: start: 20080301
  2. HEPARIN [Concomitant]

REACTIONS (3)
  - DIARRHOEA [None]
  - PERITONITIS BACTERIAL [None]
  - VOMITING [None]
